FAERS Safety Report 16080202 (Version 2)
Quarter: 2019Q2

REPORT INFORMATION
  Report Type: Report from Study
  Country: US (occurrence: US)
  Receive Date: 20190315
  Receipt Date: 20190517
  Transmission Date: 20190711
  Serious: No
  Sender: FDA-Public Use
  Company Number: PHEH2019US011184

PATIENT
  Age: 66 Year
  Sex: Female

DRUGS (1)
  1. COSENTYX [Suspect]
     Active Substance: SECUKINUMAB
     Indication: PSORIASIS
     Dosage: 300 MG, QMO
     Route: 058
     Dates: start: 20190130

REACTIONS (4)
  - Skin exfoliation [Recovering/Resolving]
  - Drug ineffective [Unknown]
  - Skin plaque [Unknown]
  - Pain of skin [Unknown]

NARRATIVE: CASE EVENT DATE: 20190130
